FAERS Safety Report 5750134-4 (Version None)
Quarter: 2008Q2

REPORT INFORMATION
  Report Type: 
  Country: None (occurrence: None)
  Receive Date: 20080527
  Receipt Date: 20080515
  Transmission Date: 20081010
  Serious: Yes (Hospitalization)
  Sender: FDA-Public Use
  Company Number: FR-PFIZER INC-2008039573

PATIENT
  Age: 35 Year
  Sex: Male

DRUGS (5)
  1. VFEND [Suspect]
     Indication: ASPERGILLOSIS
     Dosage: DAILY DOSE:9.8GRAM
     Route: 048
  2. AZITHROMYCIN [Suspect]
     Dosage: DAILY DOSE:2.5GRAM
  3. PREDNISONE [Suspect]
     Dosage: DAILY DOSE:60MG
  4. SULFAMETHOXAZOLE [Suspect]
     Dosage: DAILY DOSE:4GRAM
  5. BROMAZEPAM [Suspect]
     Dosage: DAILY DOSE:120MG

REACTIONS (13)
  - AGITATION [None]
  - BLOOD ALKALINE PHOSPHATASE INCREASED [None]
  - BLOOD BILIRUBIN INCREASED [None]
  - COMA [None]
  - CONFUSIONAL STATE [None]
  - CYTOLYTIC HEPATITIS [None]
  - DRUG TOXICITY [None]
  - GAMMA-GLUTAMYLTRANSFERASE INCREASED [None]
  - HYPOVOLAEMIA [None]
  - NEUROTOXICITY [None]
  - RENAL FAILURE ACUTE [None]
  - RHABDOMYOLYSIS [None]
  - SUICIDE ATTEMPT [None]
